FAERS Safety Report 8220880-1 (Version None)
Quarter: 2012Q1

REPORT INFORMATION
  Report Type: 
  Country: None (occurrence: None)
  Receive Date: 20120320
  Receipt Date: 20120309
  Transmission Date: 20120608
  Serious: Yes (Hospitalization)
  Sender: FDA-Public Use
  Company Number: NL-MEDIMMUNE-MEDI-0013859

PATIENT
  Sex: Male
  Weight: 3.4 kg

DRUGS (6)
  1. SYNAGIS [Suspect]
     Route: 030
     Dates: start: 20120101
  2. FERROFUMARATE [Concomitant]
  3. SPIRONOLACTONE [Concomitant]
  4. BACTRIM [Concomitant]
  5. FUROSEMIDE [Concomitant]
  6. SYNAGIS [Suspect]
     Indication: PREMATURE BABY
     Route: 030
     Dates: start: 20110922, end: 20111018

REACTIONS (7)
  - RESPIRATORY SYNCYTIAL VIRUS INFECTION [None]
  - ABDOMINAL DISTENSION [None]
  - PYREXIA [None]
  - FLUID RETENTION [None]
  - PARVOVIRUS INFECTION [None]
  - MALAISE [None]
  - INCREASED BRONCHIAL SECRETION [None]
